FAERS Safety Report 4517011-8 (Version None)
Quarter: 2004Q4

REPORT INFORMATION
  Report Type: 
  Country: None (occurrence: None)
  Receive Date: 20041130
  Receipt Date: 20041117
  Transmission Date: 20050328
  Serious: Yes (Hospitalization, Other)
  Sender: FDA-Public Use
  Company Number: 2004077616

PATIENT
  Age: 14 Year
  Sex: Male
  Weight: 57 kg

DRUGS (2)
  1. ZITHROMAX [Suspect]
     Indication: ILL-DEFINED DISORDER
     Dates: start: 19990101, end: 20040501
  2. CEFUROXIME SODIUM (CEFUROXIME SODIUM) [Suspect]
     Indication: ILL-DEFINED DISORDER
     Dates: start: 19920101, end: 20040528

REACTIONS (9)
  - BLOOD IMMUNOGLOBULIN E INCREASED [None]
  - BUNDLE BRANCH BLOCK RIGHT [None]
  - CARDIOVASCULAR DISORDER [None]
  - ELECTROCARDIOGRAM ABNORMAL [None]
  - GASTROINTESTINAL DISORDER [None]
  - HYPERSENSITIVITY [None]
  - PURULENCE [None]
  - SINUS ARRHYTHMIA [None]
  - TONSILLITIS [None]
